FAERS Safety Report 21519043 (Version 1)
Quarter: 2022Q4

REPORT INFORMATION
  Report Type: Report from Study
  Country: US (occurrence: None)
  Receive Date: 20221028
  Receipt Date: 20221028
  Transmission Date: 20230112
  Serious: Yes (Death)
  Sender: FDA-Public Use
  Company Number: US-ROCHE-3208526

PATIENT

DRUGS (2)
  1. OBINUTUZUMAB [Suspect]
     Active Substance: OBINUTUZUMAB
     Indication: B-cell lymphoma refractory
     Dosage: DATE OF LAST DOSE-20/MAR/2021
     Route: 042
     Dates: start: 20210203
  2. VENETOCLAX [Suspect]
     Active Substance: VENETOCLAX
     Indication: B-cell lymphoma refractory
     Route: 065
     Dates: start: 20210204

REACTIONS (1)
  - Disease progression [Fatal]

NARRATIVE: CASE EVENT DATE: 20210817
